FAERS Safety Report 21334404 (Version 1)
Quarter: 2022Q3

REPORT INFORMATION
  Report Type: Spontaneous
  Country: CA (occurrence: CA)
  Receive Date: 20220914
  Receipt Date: 20220914
  Transmission Date: 20221027
  Serious: Yes (Disabling, Other)
  Sender: FDA-Public Use
  Company Number: CA-BAYER-2022A125119

PATIENT
  Sex: Female

DRUGS (1)
  1. MIRENA [Suspect]
     Active Substance: LEVONORGESTREL
     Dosage: 20?G/DAY
     Route: 015

REACTIONS (11)
  - Suicidal ideation [Unknown]
  - Hypertrichosis [Unknown]
  - Negative thoughts [Unknown]
  - Migraine [Unknown]
  - Depression [Unknown]
  - Nausea [Unknown]
  - Acne [Unknown]
  - Anxiety [Unknown]
  - Sleep disorder [Unknown]
  - Decreased activity [None]
  - Dyspnoea [Unknown]
